FAERS Safety Report 6469164-2 (Version None)
Quarter: 2009Q4

REPORT INFORMATION
  Report Type: 
  Country: None (occurrence: None)
  Receive Date: 20091202
  Receipt Date: 20091202
  Transmission Date: 20100525
  Serious: Yes (Other)
  Sender: FDA-Public Use
  Company Number: None

PATIENT
  Age: 73 Year
  Sex: Male
  Weight: 80.3 kg

DRUGS (1)
  1. ALBUTEROL [Suspect]
     Indication: CHRONIC OBSTRUCTIVE PULMONARY DISEASE
     Dosage: 2 PUFF(S) QID PO
     Route: 048
     Dates: start: 20091122

REACTIONS (9)
  - ABDOMINAL DISTENSION [None]
  - ANGINA PECTORIS [None]
  - BLISTER [None]
  - CONVULSION [None]
  - DEPRESSED MOOD [None]
  - DYSPHONIA [None]
  - DYSPNOEA [None]
  - FLUSHING [None]
  - LUNG DISORDER [None]
